FAERS Safety Report 7802640-6 (Version None)
Quarter: 2011Q4

REPORT INFORMATION
  Report Type: 
  Country: None (occurrence: None)
  Receive Date: 20111007
  Receipt Date: 20110926
  Transmission Date: 20120403
  Serious: Yes (Other)
  Sender: FDA-Public Use
  Company Number: PHFR2011GB04577

PATIENT
  Sex: Male

DRUGS (2)
  1. CLOZAPINE [Suspect]
     Indication: SCHIZOPHRENIA
     Route: 048
     Dates: start: 20110527
  2. AMOXICILLIN [Concomitant]
     Indication: OBSTRUCTIVE AIRWAYS DISORDER

REACTIONS (1)
  - OBSTRUCTIVE AIRWAYS DISORDER [None]
